FAERS Safety Report 9122852 (Version 1)
Quarter: 2013Q1

REPORT INFORMATION
  Report Type: Spontaneous
  Country: US (occurrence: US)
  Receive Date: 20130227
  Receipt Date: 20130227
  Transmission Date: 20140127
  Serious: No
  Sender: FDA-Public Use
  Company Number: US-GLAXOSMITHKLINE-A0964372A

PATIENT
  Age: 69 Year
  Sex: Female

DRUGS (5)
  1. VALTREX [Suspect]
     Indication: GENITAL HERPES
     Dosage: 500MG TWICE PER DAY
     Route: 048
     Dates: start: 1992
  2. THYROID MEDICATION [Concomitant]
  3. VITAMINS [Concomitant]
  4. SLEEPING PILLS [Concomitant]
  5. LUNESTA [Concomitant]

REACTIONS (4)
  - Vertigo [Not Recovered/Not Resolved]
  - Headache [Unknown]
  - Nausea [Unknown]
  - Back pain [Unknown]
